FAERS Safety Report 9262078 (Version 2)
Quarter: 2013Q3

REPORT INFORMATION
  Report Type: Spontaneous
  Country: US (occurrence: US)
  Receive Date: 20130430
  Receipt Date: 20130926
  Transmission Date: 20140515
  Serious: Yes (Other)
  Sender: FDA-Public Use
  Company Number: US-ROCHE-748843

PATIENT
  Age: 37 Year
  Sex: Male
  Weight: 79.4 kg

DRUGS (4)
  1. ACCUTANE [Suspect]
     Indication: ACNE
     Route: 065
     Dates: start: 200010, end: 20001030
  2. ACCUTANE [Suspect]
     Route: 065
  3. ACCUTANE [Suspect]
     Route: 065
     Dates: start: 20010801, end: 200112
  4. SEPTRA DS [Concomitant]
     Indication: PROSTATITIS

REACTIONS (11)
  - Colitis ulcerative [Unknown]
  - Anal fissure [Unknown]
  - Major depression [Unknown]
  - Emotional distress [Unknown]
  - Oral herpes [Unknown]
  - Dry skin [Unknown]
  - Lip dry [Unknown]
  - Dyshidrotic eczema [Recovered/Resolved]
  - Seborrhoeic dermatitis [Recovered/Resolved]
  - Blood triglycerides increased [Unknown]
  - Fibrous histiocytoma [Unknown]
